FAERS Safety Report 23432560 (Version 4)
Quarter: 2024Q1

REPORT INFORMATION
  Report Type: Spontaneous
  Country: CA (occurrence: CA)
  Receive Date: 20240123
  Receipt Date: 20240325
  Transmission Date: 20240410
  Serious: No
  Sender: FDA-Public Use
  Company Number: CA-PFIZER INC-202400011923

PATIENT
  Age: 37 Year
  Sex: Female

DRUGS (2)
  1. ABRILADA [Suspect]
     Active Substance: ADALIMUMAB-AFZB
     Indication: Crohn^s disease
     Dosage: 1 DF, PREFILLED SYRINGEWEEK0:160MG;WEEK2:80MGTHEN 40MG EVERY OTHER WEEK
     Route: 058
     Dates: start: 20220504
  2. ABRILADA [Suspect]
     Active Substance: ADALIMUMAB-AFZB
     Dosage: 1 DF, PREFILLED SYRINGEWEEK0:160MG;WEEK2:80MGTHEN 40MG EVERY OTHER WEEK
     Route: 058

REACTIONS (2)
  - Drug dose omission by device [Unknown]
  - Liquid product physical issue [Unknown]

NARRATIVE: CASE EVENT DATE: 20240101
